FAERS Safety Report 10311470 (Version 1)
Quarter: 2014Q3

REPORT INFORMATION
  Report Type: Spontaneous
  Country: DE (occurrence: DE)
  Receive Date: 20140717
  Receipt Date: 20140717
  Transmission Date: 20150326
  Serious: Yes (Hospitalization)
  Sender: FDA-Public Use
  Company Number: DE-TEVA-493781GER

PATIENT
  Age: 56 Year
  Sex: Female

DRUGS (1)
  1. VALPROAT ABZ 300 MG RETARDTABLETTEN [Suspect]
     Active Substance: VALPROATE SODIUM
     Indication: SUICIDE ATTEMPT
     Dosage: 30 GRAM DAILY; 100 TABLETS AT ONCE
     Route: 048
     Dates: start: 20140708, end: 20140708

REACTIONS (6)
  - Suicide attempt [None]
  - Troponin increased [None]
  - Blood creatine phosphokinase increased [None]
  - Blood creatine phosphokinase MB increased [None]
  - Intentional overdose [Unknown]
  - Myocardial necrosis marker increased [Unknown]

NARRATIVE: CASE EVENT DATE: 20140708
